FAERS Safety Report 7130732-6 (Version None)
Quarter: 2010Q4

REPORT INFORMATION
  Report Type: 
  Country: None (occurrence: None)
  Receive Date: 20101201
  Receipt Date: 20101124
  Transmission Date: 20110411
  Serious: Yes (Other)
  Sender: FDA-Public Use
  Company Number: JP-ROCHE-696699

PATIENT
  Age: 76 Year

DRUGS (7)
  1. HERCEPTIN [Suspect]
     Indication: BREAST CANCER
     Dosage: DISCONTINUED
     Route: 041
     Dates: start: 20090603, end: 20100310
  2. HERCEPTIN [Suspect]
     Route: 041
  3. GASTER D [Suspect]
     Dosage: DOSAGE IS UNCERTAIN.
     Route: 048
  4. ANPLAG [Suspect]
     Dosage: DRUG:ANPLAG(SARPOGRELATE HYDROCHLORIDE), FORM:PERORAL AGENT, DOSAGE IS UNCERTAIN.
     Route: 048
  5. DIOVAN [Suspect]
     Dosage: DOSAGE IS UNCERTAIN.
     Route: 048
  6. AMLODIPINE [Suspect]
     Dosage: AMLODIN OD(AMLODIPINE BESILATE), DOSAGE IS UNCERTAIN.
     Route: 048
  7. SEIBULE [Suspect]
     Dosage: DOSAGE IS UNCERTAIN.
     Route: 048

REACTIONS (1)
  - RENAL IMPAIRMENT [None]
